FAERS Safety Report 11577646 (Version 1)
Quarter: 2015Q3

REPORT INFORMATION
  Report Type: Spontaneous
  Country: IT (occurrence: IT)
  Receive Date: 20150930
  Receipt Date: 20150930
  Transmission Date: 20151125
  Serious: Yes (Other)
  Sender: FDA-Public Use
  Company Number: IT-BRISTOL-MYERS SQUIBB COMPANY-BMS-2015-062730

PATIENT
  Age: 78 Year
  Sex: Female

DRUGS (1)
  1. KENACORT [Suspect]
     Active Substance: TRIAMCINOLONE
     Indication: URTICARIA
     Dosage: 40 MG, UNK
     Route: 065
     Dates: start: 201405, end: 201405

REACTIONS (4)
  - Scar [Not Recovered/Not Resolved]
  - Drug ineffective [Unknown]
  - Fat tissue decreased [Not Recovered/Not Resolved]
  - Calcinosis [Not Recovered/Not Resolved]

NARRATIVE: CASE EVENT DATE: 201405
